FAERS Safety Report 8788141 (Version 3)
Quarter: 2015Q2

REPORT INFORMATION
  Report Type: Report from Study
  Country: US (occurrence: US)
  Receive Date: 20120914
  Receipt Date: 20150401
  Transmission Date: 20150821
  Serious: Yes (Death)
  Sender: FDA-Public Use
  Company Number: US-ROCHE-1127506

PATIENT
  Sex: Female
  Weight: 70 kg

DRUGS (17)
  1. ALOXI [Concomitant]
     Active Substance: PALONOSETRON HYDROCHLORIDE
     Route: 042
  2. AREDIA [Concomitant]
     Active Substance: PAMIDRONATE DISODIUM
     Route: 042
  3. ZANTAC [Concomitant]
     Active Substance: RANITIDINE HYDROCHLORIDE
     Route: 042
  4. MANNITOL. [Concomitant]
     Active Substance: MANNITOL
     Route: 042
  5. TAXOL [Concomitant]
     Active Substance: PACLITAXEL
  6. BENADRYL [Concomitant]
     Active Substance: DIPHENHYDRAMINE HYDROCHLORIDE
     Route: 042
  7. ZOMETA [Concomitant]
     Active Substance: ZOLEDRONIC ACID
     Route: 042
  8. ANZEMET [Concomitant]
     Active Substance: DOLASETRON MESYLATE
     Route: 042
  9. CARBOPLATIN. [Concomitant]
     Active Substance: CARBOPLATIN
  10. DEXAMETHASONE. [Concomitant]
     Active Substance: DEXAMETHASONE
     Route: 042
  11. DIPHENHYDRAMINE [Concomitant]
     Active Substance: DIPHENHYDRAMINE
     Route: 042
  12. CISPLATIN. [Concomitant]
     Active Substance: CISPLATIN
     Route: 042
  13. AVASTIN [Suspect]
     Active Substance: BEVACIZUMAB
     Indication: LUNG NEOPLASM MALIGNANT
     Route: 042
     Dates: start: 20061127
  14. AVASTIN [Suspect]
     Active Substance: BEVACIZUMAB
     Route: 042
     Dates: start: 20061127
  15. TAXOTERE [Concomitant]
     Active Substance: DOCETAXEL
  16. GEMCITABINE [Concomitant]
     Active Substance: GEMCITABINE\GEMCITABINE HYDROCHLORIDE
     Route: 042
  17. ZOFRAN [Concomitant]
     Active Substance: ONDANSETRON HYDROCHLORIDE
     Route: 042

REACTIONS (10)
  - Contusion [Unknown]
  - Chills [Unknown]
  - Death [Fatal]
  - Dysuria [Unknown]
  - Nausea [Unknown]
  - Haemorrhage [Unknown]
  - Pyrexia [Unknown]
  - Vomiting [Unknown]
  - Arthralgia [Unknown]
  - Muscular weakness [Unknown]
